FAERS Safety Report 10683612 (Version 2)
Quarter: 2015Q1

REPORT INFORMATION
  Report Type: Spontaneous
  Country: JP (occurrence: JP)
  Receive Date: 20141230
  Receipt Date: 20150120
  Transmission Date: 20150720
  Serious: Yes (Other)
  Sender: FDA-Public Use
  Company Number: PHHY2014JP168524

PATIENT
  Age: 12 Year
  Sex: Male
  Weight: 31 kg

DRUGS (26)
  1. NEORAL [Interacting]
     Active Substance: CYCLOSPORINE
     Dosage: 100 MG, QD
     Route: 048
     Dates: start: 20141017
  2. NEORAL [Interacting]
     Active Substance: CYCLOSPORINE
     Dosage: 70 MG, BID
     Route: 048
     Dates: start: 20141101
  3. NEORAL [Interacting]
     Active Substance: CYCLOSPORINE
     Dosage: 100 MG, QD
     Route: 048
     Dates: start: 20140929
  4. NEORAL [Interacting]
     Active Substance: CYCLOSPORINE
     Dosage: 80 MG, QD
     Route: 048
     Dates: start: 20141003
  5. NEORAL [Interacting]
     Active Substance: CYCLOSPORINE
     Dosage: 120 MG, QD
     Route: 048
     Dates: start: 20141014
  6. NEORAL [Interacting]
     Active Substance: CYCLOSPORINE
     Dosage: 80 MG, QD
     Route: 048
     Dates: start: 20141212
  7. PREDONINE [Suspect]
     Active Substance: PREDNISOLONE\PREDNISOLONE ACETATE\PREDNISOLONE SODIUM SUCCINATE
     Dosage: 35 MG, QD
     Route: 048
     Dates: start: 20140923
  8. PREDONINE [Suspect]
     Active Substance: PREDNISOLONE\PREDNISOLONE ACETATE\PREDNISOLONE SODIUM SUCCINATE
     Dosage: 20 MG, QD
     Route: 048
     Dates: start: 20141030
  9. PREDONINE [Suspect]
     Active Substance: PREDNISOLONE\PREDNISOLONE ACETATE\PREDNISOLONE SODIUM SUCCINATE
     Dosage: 35 MG, QOD
     Route: 048
     Dates: start: 20141113
  10. NEORAL [Interacting]
     Active Substance: CYCLOSPORINE
     Dosage: 100 MG, QD
     Route: 048
     Dates: start: 20141010
  11. NEORAL [Interacting]
     Active Substance: CYCLOSPORINE
     Dosage: 70 MG, QD
     Route: 048
     Dates: start: 20141208
  12. NEORAL [Interacting]
     Active Substance: CYCLOSPORINE
     Dosage: 40 MG, QD
     Route: 048
     Dates: start: 20141222
  13. PREDONINE [Suspect]
     Active Substance: PREDNISOLONE\PREDNISOLONE ACETATE\PREDNISOLONE SODIUM SUCCINATE
     Dosage: 50 MG, QOD
     Route: 048
     Dates: start: 20140910
  14. PREDONINE [Suspect]
     Active Substance: PREDNISOLONE\PREDNISOLONE ACETATE\PREDNISOLONE SODIUM SUCCINATE
     Dosage: 35 MG, QOD
     Route: 048
     Dates: start: 20141020
  15. NEORAL [Suspect]
     Active Substance: CYCLOSPORINE
     Indication: NEPHROTIC SYNDROME
     Dosage: 70 MG, QD
     Route: 048
     Dates: start: 20140922
  16. NEORAL [Interacting]
     Active Substance: CYCLOSPORINE
     Dosage: 110 MG, QD
     Route: 048
     Dates: start: 20141024, end: 20141029
  17. NEORAL [Interacting]
     Active Substance: CYCLOSPORINE
     Dosage: 90 MG, QD
     Route: 048
     Dates: start: 20141215
  18. PREDONINE [Suspect]
     Active Substance: PREDNISOLONE\PREDNISOLONE ACETATE\PREDNISOLONE SODIUM SUCCINATE
     Dosage: 10 MG, QOD
     Route: 048
     Dates: start: 20141029
  19. PREDONINE [Suspect]
     Active Substance: PREDNISOLONE\PREDNISOLONE ACETATE\PREDNISOLONE SODIUM SUCCINATE
     Dosage: 35 MG, QD
     Route: 048
     Dates: start: 20141105
  20. NEORAL [Interacting]
     Active Substance: CYCLOSPORINE
     Dosage: 50 MG, BID
     Route: 048
     Dates: start: 20141219
  21. NEORAL [Interacting]
     Active Substance: CYCLOSPORINE
     Dosage: 50 MG, QD
     Route: 048
     Dates: start: 20140925
  22. NEORAL [Interacting]
     Active Substance: CYCLOSPORINE
     Dosage: 90 MG, QD
     Route: 048
     Dates: start: 20141104
  23. PREDONINE [Suspect]
     Active Substance: PREDNISOLONE\PREDNISOLONE ACETATE\PREDNISOLONE SODIUM SUCCINATE
     Dosage: 35 MG, QOD
     Route: 048
     Dates: start: 20141101
  24. NEORAL [Interacting]
     Active Substance: CYCLOSPORINE
     Dosage: 80 MG, QD
     Route: 048
     Dates: start: 20141202
  25. NEORAL [Interacting]
     Active Substance: CYCLOSPORINE
     Dosage: 60 MG, QD
     Route: 048
     Dates: start: 20141205
  26. PREDONINE [Suspect]
     Active Substance: PREDNISOLONE\PREDNISOLONE ACETATE\PREDNISOLONE SODIUM SUCCINATE
     Indication: NEPHROTIC SYNDROME
     Dosage: 75 MG, QD
     Route: 048
     Dates: start: 20140813

REACTIONS (12)
  - Headache [Unknown]
  - Drug interaction [Unknown]
  - Red blood cell count increased [Unknown]
  - Fungal infection [Recovering/Resolving]
  - Pyrexia [Unknown]
  - Red blood cell count decreased [Unknown]
  - Haemoglobin decreased [Unknown]
  - Immunosuppressant drug level increased [Recovered/Resolved]
  - Renal impairment [Unknown]
  - Nephrotic syndrome [Unknown]
  - Haematocrit decreased [Unknown]
  - Bacterial infection [Unknown]

NARRATIVE: CASE EVENT DATE: 20141024
